FAERS Safety Report 10693107 (Version 1)
Quarter: 2015Q1

REPORT INFORMATION
  Report Type: Spontaneous
  Country: GB (occurrence: GB)
  Receive Date: 20150106
  Receipt Date: 20150106
  Transmission Date: 20150720
  Serious: Yes (Other)
  Sender: FDA-Public Use
  Company Number: GB-SA-2014SA172823

PATIENT
  Age: 27 Year
  Sex: Female

DRUGS (2)
  1. RIFAMPIN. [Suspect]
     Active Substance: RIFAMPIN
     Indication: TUBERCULOSIS
     Dosage: UNK
     Route: 065
  2. NEXPLANON [Interacting]
     Active Substance: ETONOGESTREL
     Dosage: UNK?SUBDERMAL IMPLANT
     Dates: start: 20120109

REACTIONS (5)
  - Drug effect decreased [Unknown]
  - Unintended pregnancy [Unknown]
  - Tuberculosis [Unknown]
  - Drug interaction [Unknown]
  - Exposure during pregnancy [Unknown]

NARRATIVE: CASE EVENT DATE: 201310
